FAERS Safety Report 10234804 (Version 1)
Quarter: 2014Q2

REPORT INFORMATION
  Report Type: Spontaneous
  Country: US (occurrence: None)
  Receive Date: 20140509
  Receipt Date: 20140509
  Transmission Date: 20141212
  Serious: Yes (Other)
  Sender: FDA-Public Use
  Company Number: VISP-PR-1403S-0132

PATIENT
  Age: 35 Year
  Sex: Female

DRUGS (4)
  1. VISIPAQUE (IODIXANOL) [Suspect]
     Indication: CHEST PAIN
     Route: 042
     Dates: start: 20140314, end: 20140314
  2. VISIPAQUE (IODIXANOL) [Suspect]
     Indication: DIAGNOSTIC PROCEDURE
     Route: 042
     Dates: start: 20140314, end: 20140314
  3. ELAVIL(AMITRIPTYLINE HYDROCHLORIDE) [Concomitant]
  4. FLEXERIL(CYCLOBENZAPRINE HYDROCHLORIDE) [Concomitant]

REACTIONS (2)
  - Urticaria [None]
  - Dyspnoea [None]
